FAERS Safety Report 9109556 (Version 1)
Quarter: 2013Q1

REPORT INFORMATION
  Report Type: Spontaneous
  Country: US (occurrence: US)
  Receive Date: 20130222
  Receipt Date: 20130222
  Transmission Date: 20140127
  Serious: Yes (Other)
  Sender: FDA-Public Use
  Company Number: US-009507513-1302USA002593

PATIENT
  Age: 61 Year
  Sex: Female
  Weight: 74.8 kg

DRUGS (6)
  1. AZASITE [Suspect]
     Indication: DACRYOSTENOSIS ACQUIRED
     Dosage: 1 GTT, QD
     Route: 047
     Dates: start: 20100422, end: 20100423
  2. VITAMIN B COMPLEX [Concomitant]
     Dosage: UNK
     Dates: start: 2007
  3. COD LIVER OIL [Concomitant]
     Dosage: UNK
     Dates: start: 2007
  4. TAGAMET [Concomitant]
     Dosage: UNK
     Dates: start: 2007
  5. ASPIRIN [Concomitant]
     Dosage: UNK
  6. SYSTANE [Concomitant]
     Dosage: UNK
     Dates: start: 2007

REACTIONS (4)
  - Hypersensitivity [Recovered/Resolved]
  - Eyelid oedema [Recovered/Resolved]
  - Eye irritation [Recovered/Resolved]
  - Eye pruritus [Recovered/Resolved]
